FAERS Safety Report 19062165 (Version 1)
Quarter: 2021Q1

REPORT INFORMATION
  Report Type: Spontaneous
  Country: US (occurrence: US)
  Receive Date: 20210325
  Receipt Date: 20210325
  Transmission Date: 20210420
  Serious: Yes (Death)
  Sender: FDA-Public Use
  Company Number: None

PATIENT
  Age: 22 Year
  Sex: Male

DRUGS (12)
  1. MAGNESIUM OXIDE. [Concomitant]
     Active Substance: MAGNESIUM OXIDE
  2. BUDESONIDE. [Concomitant]
     Active Substance: BUDESONIDE
  3. HYDROCHLORTHIAZIDE [Concomitant]
     Active Substance: HYDROCHLOROTHIAZIDE
  4. GABAPENTIN. [Concomitant]
     Active Substance: GABAPENTIN
  5. ATENOLOL. [Concomitant]
     Active Substance: ATENOLOL
  6. PULMOZYME [Suspect]
     Active Substance: DORNASE ALFA
     Indication: BRONCHIECTASIS
     Route: 055
     Dates: start: 20170627
  7. CUVPOSA [Concomitant]
     Active Substance: GLYCOPYRROLATE
  8. BACLOFEN. [Concomitant]
     Active Substance: BACLOFEN
  9. NITROFURANTOIN. [Concomitant]
     Active Substance: NITROFURANTOIN
  10. VALPROIC ACID. [Concomitant]
     Active Substance: VALPROIC ACID
  11. LEVETIRACETAM. [Concomitant]
     Active Substance: LEVETIRACETAM
  12. MONTELUKAST [Concomitant]
     Active Substance: MONTELUKAST SODIUM

REACTIONS (1)
  - Respiratory disorder [None]
